FAERS Safety Report 7922059-7 (Version None)
Quarter: 2011Q4

REPORT INFORMATION
  Report Type: 
  Country: None (occurrence: None)
  Receive Date: 20111117
  Receipt Date: 20111108
  Transmission Date: 20120403
  Serious: Yes (Other)
  Sender: FDA-Public Use
  Company Number: CA-ASTRAZENECA-2011SE64881

PATIENT
  Age: 77 Year
  Sex: Male

DRUGS (5)
  1. SPIRIVA [Concomitant]
  2. AVAPRO [Concomitant]
  3. PRAMIPEXOLE DIHYDROCHLORIDE [Concomitant]
  4. IRESSA [Suspect]
     Indication: NON-SMALL CELL LUNG CANCER
     Route: 048
     Dates: start: 20110601
  5. ZOPICLONE [Concomitant]

REACTIONS (7)
  - ARTHRITIS [None]
  - HAIR COLOUR CHANGES [None]
  - HAIR TEXTURE ABNORMAL [None]
  - HAIR GROWTH ABNORMAL [None]
  - NAIL GROWTH ABNORMAL [None]
  - ANXIETY [None]
  - DIARRHOEA [None]
